FAERS Safety Report 23849390 (Version 1)
Quarter: 2024Q2

REPORT INFORMATION
  Report Type: Spontaneous
  Country: US (occurrence: None)
  Receive Date: 20240512
  Receipt Date: 20240512
  Transmission Date: 20240716
  Serious: Yes (Hospitalization)
  Sender: FDA-Public Use
  Company Number: None

PATIENT
  Age: 72 Year
  Sex: Male
  Weight: 88 kg

DRUGS (1)
  1. DAPSONE [Suspect]
     Active Substance: DAPSONE
     Indication: Infection prophylaxis
     Dosage: 100 MG EVERY DAY PO?
     Route: 048
     Dates: end: 20200916

REACTIONS (1)
  - Anaemia [None]

NARRATIVE: CASE EVENT DATE: 20200916
